FAERS Safety Report 6380271-5 (Version None)
Quarter: 2009Q3

REPORT INFORMATION
  Report Type: 
  Country: None (occurrence: None)
  Receive Date: 20090916
  Receipt Date: 20090909
  Transmission Date: 20100115
  Serious: Yes (Other)
  Sender: FDA-Public Use
  Company Number: 2009020701

PATIENT
  Age: 59 Year
  Sex: Male

DRUGS (5)
  1. ALBUMINAR-5 [Suspect]
     Indication: HAEMORRHAGE
     Dosage: 750 ML, 750 ML INTRAVENOUS DRIP INTRAVENOUS DRIP
     Route: 041
     Dates: start: 20090902, end: 20090902
  2. PROPOFOL [Concomitant]
  3. EPHEDRINE SUL CAP [Concomitant]
  4. ULTIVA [Concomitant]
  5. RED BLOOD CELLS [Concomitant]

REACTIONS (2)
  - ATRIAL THROMBOSIS [None]
  - SHOCK [None]
